FAERS Safety Report 23967352 (Version 4)
Quarter: 2024Q3

REPORT INFORMATION
  Report Type: Spontaneous
  Country: US (occurrence: US)
  Receive Date: 20240612
  Receipt Date: 20240924
  Transmission Date: 20241017
  Serious: No
  Sender: PFIZER
  Company Number: US-PFIZER INC-202400188549

PATIENT
  Age: 32 Year
  Sex: Female

DRUGS (2)
  1. GENOTROPIN [Suspect]
     Active Substance: SOMATROPIN
     Dosage: 0.2 MG, ALTERNATE DAY (ALTERNATE 0.2 MG + 0.4 MG, EVERY OTHER DAY)
  2. GENOTROPIN [Suspect]
     Active Substance: SOMATROPIN
     Dosage: 0.4 MG, ALTERNATE DAY (ALTERNATE 0.2 MG + 0.4 MG, EVERY OTHER DAY)

REACTIONS (3)
  - Drug dose omission by device [Unknown]
  - Device use error [Unknown]
  - Device leakage [Unknown]
